FAERS Safety Report 15617374 (Version 1)
Quarter: 2018Q4

REPORT INFORMATION
  Report Type: Spontaneous
  Country: TR (occurrence: TR)
  Receive Date: 20181114
  Receipt Date: 20181114
  Transmission Date: 20190205
  Serious: Yes (Hospitalization)
  Sender: FDA-Public Use
  Company Number: TR-BAYER-2018-208103

PATIENT
  Age: 59 Year
  Sex: Male

DRUGS (5)
  1. NIMODIPINE. [Suspect]
     Active Substance: NIMODIPINE
     Indication: VASCULAR DISORDER PROPHYLAXIS
     Dosage: 360 MG/24HR, UNK
  2. ACETYLSALICYLIC ACID({=100 MG) [Suspect]
     Active Substance: ASPIRIN
     Indication: BLOOD DISORDER PROPHYLAXIS
     Dosage: 100 MG, UNK
  3. PARACETAMOL [Concomitant]
     Active Substance: ACETAMINOPHEN
     Indication: PAIN
     Dosage: 500 MG, QID
     Route: 042
  4. TRAMADOL. [Concomitant]
     Active Substance: TRAMADOL
     Indication: PAIN
     Dosage: 100 MG, PRN
     Route: 042
  5. PRASUGREL. [Suspect]
     Active Substance: PRASUGREL
     Indication: BLOOD DISORDER PROPHYLAXIS
     Dosage: 5 MG, UNK

REACTIONS (2)
  - Cerebral vasoconstriction [None]
  - Motor dysfunction [None]
